FAERS Safety Report 4312351-X (Version None)
Quarter: 2004Q1

REPORT INFORMATION
  Report Type: 
  Country: None (occurrence: None)
  Receive Date: 20040303
  Receipt Date: 20040301
  Transmission Date: 20041129
  Serious: Yes (Hospitalization)
  Sender: FDA-Public Use
  Company Number: 200402021

PATIENT
  Sex: Male

DRUGS (6)
  1. PEPCID COMPLETE [Suspect]
     Indication: FLATULENCE
     Dosage: 1 TABS PRN PO
     Route: 048
     Dates: start: 20040101, end: 20040202
  2. ASPIRIN [Concomitant]
  3. PLAVIX [Concomitant]
  4. ZOCOR [Concomitant]
  5. ACCUPRIL [Concomitant]
  6. ISOSORBIDE DINITRATE [Concomitant]

REACTIONS (2)
  - LOSS OF CONSCIOUSNESS [None]
  - PULSE ABSENT [None]
